FAERS Safety Report 23535119 (Version 3)
Quarter: 2024Q1

REPORT INFORMATION
  Report Type: Spontaneous
  Country: NL (occurrence: NL)
  Receive Date: 20240217
  Receipt Date: 20240304
  Transmission Date: 20240410
  Serious: Yes (Other)
  Sender: FDA-Public Use
  Company Number: NL-ABBVIE-5499881

PATIENT
  Sex: Female

DRUGS (12)
  1. ENTYVIO [Suspect]
     Active Substance: VEDOLIZUMAB
     Indication: Volume blood decreased
     Dosage: FORM STRENGTH: 300 MG
     Route: 065
     Dates: end: 20230919
  2. HUMIRA [Suspect]
     Active Substance: ADALIMUMAB
     Indication: Crohn^s disease
     Route: 058
  3. METHOTREXATE [Suspect]
     Active Substance: METHOTREXATE
     Indication: Product used for unknown indication
     Route: 065
  4. PREDNISONE [Suspect]
     Active Substance: PREDNISONE
     Dosage: 5-10MG/DAG, QD
     Route: 065
  5. PREDNISONE [Suspect]
     Active Substance: PREDNISONE
     Indication: Product used for unknown indication
     Route: 065
     Dates: start: 20231001
  6. PURINETHOL [Suspect]
     Active Substance: MERCAPTOPURINE
     Indication: Product used for unknown indication
     Route: 065
  7. REMICADE [Suspect]
     Active Substance: INFLIXIMAB
     Indication: Product used for unknown indication
     Route: 065
  8. STELARA [Suspect]
     Active Substance: USTEKINUMAB
     Indication: Product used for unknown indication
     Route: 065
  9. TACROLIMUS [Suspect]
     Active Substance: TACROLIMUS
     Indication: Product used for unknown indication
     Route: 065
  10. THIOGUANINE ANHYDROUS [Suspect]
     Active Substance: THIOGUANINE ANHYDROUS
     Indication: Product used for unknown indication
     Route: 065
  11. VEDOLIZUMAB [Suspect]
     Active Substance: VEDOLIZUMAB
     Indication: Volume blood decreased
     Dosage: UNK
     Route: 065
     Dates: start: 20230919, end: 20230919
  12. CALCIUM [Concomitant]
     Active Substance: CALCIUM
     Indication: Product used for unknown indication
     Route: 065

REACTIONS (13)
  - Intestinal anastomosis [Unknown]
  - Lupus-like syndrome [Unknown]
  - Ileocaecal resection [Unknown]
  - Ileal ulcer [Unknown]
  - Volume blood decreased [Unknown]
  - Drug resistance [Unknown]
  - Drug intolerance [Unknown]
  - Drug intolerance [Unknown]
  - Drug intolerance [Unknown]
  - Abdominal pain [Not Recovered/Not Resolved]
  - Liver function test abnormal [Unknown]
  - Diarrhoea [Unknown]
  - Drug intolerance [Unknown]
